FAERS Safety Report 4365462-7 (Version None)
Quarter: 2004Q2

REPORT INFORMATION
  Report Type: 
  Country: None (occurrence: None)
  Receive Date: 20040526
  Receipt Date: 20040223
  Transmission Date: 20050107
  Serious: Yes (Death, Hospitalization)
  Sender: FDA-Public Use
  Company Number: US-AMGEN-KDL067587

PATIENT
  Age: 71 Year
  Sex: Female

DRUGS (13)
  1. PROCRIT [Suspect]
     Indication: RENAL FAILURE CHRONIC
     Dates: start: 20040118
  2. ALBUTEROL [Concomitant]
  3. ATROVENT [Concomitant]
  4. LASIX [Concomitant]
     Route: 048
  5. NORVASC [Concomitant]
     Route: 048
  6. PROTONIX [Concomitant]
     Route: 048
  7. TOPRAL [Concomitant]
     Route: 048
  8. LIPITOR [Concomitant]
     Route: 048
  9. WELLBUTRIN [Concomitant]
     Route: 048
  10. LOTENSIN [Concomitant]
     Route: 048
  11. METOLAZONE [Concomitant]
     Route: 048
  12. CALCITRIOL [Concomitant]
     Route: 048
  13. IRON [Concomitant]
     Route: 048

REACTIONS (6)
  - ABDOMINAL PAIN [None]
  - DEHYDRATION [None]
  - DIARRHOEA [None]
  - NAUSEA [None]
  - SEPSIS [None]
  - VOMITING [None]
